FAERS Safety Report 11703048 (Version 5)
Quarter: 2017Q1

REPORT INFORMATION
  Report Type: Spontaneous
  Country: US (occurrence: US)
  Receive Date: 20151105
  Receipt Date: 20170110
  Transmission Date: 20170428
  Serious: Yes (Other)
  Sender: FDA-Public Use
  Company Number: PHEH2015US022680

PATIENT
  Sex: Female
  Weight: 95.24 kg

DRUGS (2)
  1. ZOFRAN ODT [Suspect]
     Active Substance: ONDANSETRON HYDROCHLORIDE
     Indication: VOMITING IN PREGNANCY
     Dosage: 1 DF, BID
     Route: 048
     Dates: start: 20140407
  2. ONDANSETRON [Suspect]
     Active Substance: ONDANSETRON
     Indication: VOMITING IN PREGNANCY
     Dosage: 8 MG, BID
     Route: 048
     Dates: start: 201406, end: 201410

REACTIONS (18)
  - Insomnia [Unknown]
  - Emotional distress [Unknown]
  - Product use issue [Unknown]
  - Maternal exposure during pregnancy [Unknown]
  - Dysmenorrhoea [Unknown]
  - Dyspepsia [Unknown]
  - Eczema [Unknown]
  - Anxiety [Unknown]
  - Pain [Unknown]
  - Back pain [Unknown]
  - Gastroenteritis [Unknown]
  - Otitis media acute [Unknown]
  - Bronchitis [Unknown]
  - Depression [Unknown]
  - Stillbirth [Unknown]
  - Injury [Unknown]
  - Pharyngitis [Unknown]
  - Migraine [Unknown]
